FAERS Safety Report 4539635-4 (Version None)
Quarter: 2004Q4

REPORT INFORMATION
  Report Type: 
  Country: None (occurrence: None)
  Receive Date: 20041223
  Receipt Date: 20041217
  Transmission Date: 20050328
  Serious: Yes (Hospitalization, Other)
  Sender: FDA-Public Use
  Company Number: HQWYE106320DEC04

PATIENT
  Age: 29 Year
  Sex: Female

DRUGS (16)
  1. CYCLOSPORINE [Suspect]
     Indication: PROPHYLAXIS AGAINST TRANSPLANT REJECTION
     Dosage: 100 MG 2X PER 1 DAY ORAL
     Route: 048
     Dates: start: 20001015
  2. WELLBUTRIN [Concomitant]
  3. FENPROPOREX            (FENPROPOREX) [Concomitant]
  4. OMEPRAZOLE [Concomitant]
  5. AMFEPRAMONE                 (AMFEPRAMONE) [Concomitant]
  6. BROMOPRIDE              (BROMOPRIDE) [Concomitant]
  7. CASCARA SAGRADA (CASCARA) [Concomitant]
  8. CLONAZEPAM [Concomitant]
  9. FLUOXETINE [Concomitant]
  10. ATENOLOL [Concomitant]
  11. SIMETHICONE            (DIMETICONE, ACTIVATED) [Concomitant]
  12. GINKGO BILOBA             (GINKGO BILOBA) [Concomitant]
  13. AMLODIPINE BESYLATE [Concomitant]
  14. BEZAFIBRATE             (BEZAFIBRATE) [Concomitant]
  15. PREDNISONE [Concomitant]
  16. MYCOPHENOLATE MOFETIL             (MYCOPHENOLATE MOFETIL) [Concomitant]

REACTIONS (3)
  - BLOOD CREATININE INCREASED [None]
  - BLOOD UREA INCREASED [None]
  - KIDNEY TRANSPLANT REJECTION [None]
